FAERS Safety Report 20435313 (Version 1)
Quarter: 2022Q1

REPORT INFORMATION
  Report Type: Report from Study
  Country: JP (occurrence: JP)
  Receive Date: 20220206
  Receipt Date: 20220206
  Transmission Date: 20220424
  Serious: Yes (Other)
  Sender: FDA-Public Use
  Company Number: JP-TAKEDA-JP201603596

PATIENT
  Age: 1 Year
  Sex: Female

DRUGS (47)
  1. VELAGLUCERASE ALFA [Suspect]
     Active Substance: VELAGLUCERASE ALFA
     Indication: Gaucher^s disease type II
     Dosage: 40 - 60 IU/KG, 1X/2WKS
     Route: 041
     Dates: start: 20160113
  2. VELAGLUCERASE ALFA [Suspect]
     Active Substance: VELAGLUCERASE ALFA
     Dosage: 40 - 60 IU/KG, 1X/2WKS
     Route: 041
  3. PREDONINE                          /00016201/ [Concomitant]
     Indication: Product used for unknown indication
     Dosage: 10 MG, 1X/DAY:QD
     Route: 042
     Dates: start: 20160323, end: 20160323
  4. ACETAMINOPHEN [Concomitant]
     Active Substance: ACETAMINOPHEN
     Indication: Product used for unknown indication
     Dosage: 70 MG, UNKNOWN
     Route: 048
     Dates: start: 20160404
  5. ACETAMINOPHEN [Concomitant]
     Active Substance: ACETAMINOPHEN
     Dosage: 100 MG, UNKNOWN
     Route: 048
     Dates: end: 20170110
  6. ATARAX-P                           /00058402/ [Concomitant]
     Indication: Product used for unknown indication
     Dosage: 1 MILLIGRAM, 1X/DAY:QD
     Route: 048
     Dates: start: 20160404, end: 20170110
  7. BROMAZEPAM [Concomitant]
     Active Substance: BROMAZEPAM
     Indication: Myoclonus
     Dosage: 2 GRAM
     Route: 048
     Dates: start: 20150831
  8. BROMAZEPAM [Concomitant]
     Active Substance: BROMAZEPAM
     Indication: Muscle tightness
     Dosage: 0.3 GRAM
     Route: 048
     Dates: start: 20150831
  9. BROMAZEPAM [Concomitant]
     Active Substance: BROMAZEPAM
     Dosage: 9.6 GRAM
     Route: 048
     Dates: start: 20150831
  10. BROMAZEPAM [Concomitant]
     Active Substance: BROMAZEPAM
     Dosage: 0.9 GRAM
     Route: 048
     Dates: start: 20150831
  11. BROMAZEPAM [Concomitant]
     Active Substance: BROMAZEPAM
     Dosage: 1.5 GRAM
     Route: 048
     Dates: start: 20150831
  12. BROMAZEPAM [Concomitant]
     Active Substance: BROMAZEPAM
     Dosage: 4 GRAM
     Route: 048
     Dates: start: 20150831
  13. PHENOBAL                           /00023201/ [Concomitant]
     Indication: Product used for unknown indication
     Dosage: 2.8 GRAM
     Route: 048
  14. TIZANIDINE [Concomitant]
     Active Substance: TIZANIDINE
     Indication: Product used for unknown indication
     Dosage: 1.5 GRAM
     Route: 048
     Dates: start: 20151001
  15. LEVETIRACETAM [Concomitant]
     Active Substance: LEVETIRACETAM
     Indication: Product used for unknown indication
     Dosage: 0.9 GRAM
     Route: 048
  16. RIVOTRIL [Concomitant]
     Active Substance: CLONAZEPAM
     Indication: Product used for unknown indication
     Dosage: 1.3 GRAM
     Route: 048
     Dates: start: 20151020
  17. DEPAKENE                           /00228501/ [Concomitant]
     Indication: Product used for unknown indication
     Dosage: 2 MILLILITER
     Route: 048
     Dates: start: 20160523
  18. SINGULAIR [Concomitant]
     Active Substance: MONTELUKAST SODIUM
     Indication: Asthma
     Dosage: 1 DOSAGE FORM
     Route: 048
     Dates: start: 20151123
  19. DIETARY SUPPLEMENT\UBIDECARENONE [Concomitant]
     Active Substance: DIETARY SUPPLEMENT\UBIDECARENONE
     Indication: Cardiac failure
     Dosage: 1 GRAM
     Dates: start: 20170309
  20. ONEDURO [Concomitant]
     Active Substance: FENTANYL
     Indication: Pain
     Dosage: 1.7 MILLIGRAM
     Route: 050
     Dates: start: 20160908
  21. MORPHINE HYDROCHLORIDE [Concomitant]
     Active Substance: MORPHINE HYDROCHLORIDE
     Indication: Pain
     Dosage: 0.06 GRAM
     Route: 065
     Dates: start: 20161117
  22. BACLOFEN [Concomitant]
     Active Substance: BACLOFEN
     Indication: Muscle tightness
     Dosage: 5 UNK
     Route: 048
     Dates: start: 20160523
  23. PULMICORT TURBUHALER [Concomitant]
     Active Substance: BUDESONIDE
     Indication: Hypersensitivity
     Dosage: 2 MILLILITER
     Route: 050
     Dates: start: 20151125
  24. TRICLOFOS SODIUM [Concomitant]
     Active Substance: TRICLOFOS SODIUM
     Indication: Myoclonus
     Dosage: 16 MILLILITER
     Route: 048
     Dates: end: 20170906
  25. TRICLOFOS SODIUM [Concomitant]
     Active Substance: TRICLOFOS SODIUM
     Indication: Muscle tightness
  26. SOLU-MEDROL [Concomitant]
     Active Substance: METHYLPREDNISOLONE SODIUM SUCCINATE
     Indication: Product used for unknown indication
     Dosage: 20 MG, UNK
     Route: 042
  27. SOLU-MEDROL [Concomitant]
     Active Substance: METHYLPREDNISOLONE SODIUM SUCCINATE
     Dosage: 20 MG, UNK
     Route: 042
     Dates: start: 20170221
  28. MAGNESIUM OXIDE [Concomitant]
     Active Substance: MAGNESIUM OXIDE
     Indication: Constipation
     Dosage: 1 GRAM
     Route: 048
     Dates: start: 20161213
  29. AMOXICILLIN [Concomitant]
     Active Substance: AMOXICILLIN
     Indication: Product used for unknown indication
     Dosage: 50 MILLIGRAM
     Route: 042
     Dates: start: 20170110, end: 20170207
  30. CERCINE [Concomitant]
     Active Substance: DIAZEPAM
     Indication: Myoclonus
     Dosage: 8 MILLILITER
     Dates: start: 20160509, end: 20170517
  31. CERCINE [Concomitant]
     Active Substance: DIAZEPAM
     Indication: Muscle tightness
  32. ROZEREM [Concomitant]
     Active Substance: RAMELTEON
     Indication: Insomnia
     Dosage: 0.1 GRAM
     Dates: start: 20151123, end: 20170725
  33. MOSAPRIDE CITRATE [Concomitant]
     Active Substance: MOSAPRIDE CITRATE
     Indication: Dyspepsia
     Dosage: 0.75 GRAM
     Route: 065
     Dates: start: 20160709
  34. SODIUM CHLORIDE [Concomitant]
     Active Substance: SODIUM CHLORIDE
     Indication: Inhalation therapy
     Dosage: 20 MILLILITER
     Route: 050
     Dates: start: 20150822
  35. AZULENE [Concomitant]
     Active Substance: AZULENE
     Indication: Prophylaxis
     Dosage: 10 MILLILITER
     Route: 049
     Dates: start: 20160709
  36. POTASSIUM CHLORIDE\SODIUM CHLORIDE\SODIUM LACTATE [Concomitant]
     Active Substance: POTASSIUM CHLORIDE\SODIUM CHLORIDE\SODIUM LACTATE
     Indication: Fluid replacement
     Dosage: 4 DOSAGE FORM
     Route: 065
     Dates: start: 20150929
  37. GLYCOSAMINOGLYCANS [Concomitant]
     Active Substance: GLYCOSAMINOGLYCANS
     Indication: Dry skin
     Dosage: UNK
     Route: 050
     Dates: start: 20160310
  38. WHITE PETROLATUM [Concomitant]
     Active Substance: PETROLATUM
     Indication: Dry skin
     Dosage: UNK
     Route: 050
     Dates: start: 20160829, end: 20170405
  39. KENEI ENEMA [Concomitant]
     Indication: Constipation
     Dosage: 30 MILLILITER
     Route: 054
     Dates: start: 20151028
  40. AZUNOL #1 [Concomitant]
     Indication: Eczema
     Dosage: UNK
     Route: 050
     Dates: start: 20151207
  41. CARBOCYSTEINE [Concomitant]
     Active Substance: CARBOCYSTEINE
     Indication: Productive cough
     Dosage: UNK
     Route: 048
     Dates: start: 20151221
  42. SODIUM DECAHYDROAZULENE-1-SULFONATE [Concomitant]
     Active Substance: SODIUM DECAHYDROAZULENE-1-SULFONATE
     Indication: Eye discharge
     Dosage: UNK
     Route: 047
     Dates: start: 20150831, end: 20180613
  43. DIMETHICONE [Concomitant]
     Active Substance: DIMETHICONE
     Indication: Product used for unknown indication
     Dosage: 1.5 MILLILITER
     Route: 048
     Dates: start: 20160709
  44. SODIUM PICOSULFATE [Concomitant]
     Active Substance: SODIUM PICOSULFATE
     Indication: Product used for unknown indication
     Dosage: UNK
     Route: 048
     Dates: start: 20161122
  45. ENEVO [Concomitant]
     Indication: Product used for unknown indication
     Dosage: 250 MILLILITER
     Route: 065
     Dates: start: 20170920
  46. SAXIZON [Concomitant]
     Active Substance: HYDROCORTISONE SODIUM SUCCINATE
     Indication: Product used for unknown indication
     Dosage: UNK
     Route: 042
     Dates: start: 20170110, end: 20170207
  47. IMIGLUCERASE RECOMBINANT [Concomitant]
     Indication: Gaucher^s disease type II
     Dosage: UNK
     Route: 065
     Dates: start: 20150728, end: 20151228

REACTIONS (8)
  - Erythema [Recovered/Resolved]
  - Tachycardia [Recovered/Resolved]
  - Swelling of eyelid [Recovered/Resolved]
  - Antibody test positive [Unknown]
  - Antibody test positive [Unknown]
  - Hepatic function abnormal [Not Recovered/Not Resolved]
  - Respiratory tract infection [Recovered/Resolved]
  - Constipation [Unknown]

NARRATIVE: CASE EVENT DATE: 20160307
